FAERS Safety Report 10239961 (Version 1)
Quarter: 2014Q2

REPORT INFORMATION
  Report Type: Spontaneous
  Country: US (occurrence: US)
  Receive Date: 20140616
  Receipt Date: 20140616
  Transmission Date: 20141212
  Serious: Yes (Hospitalization, Other)
  Sender: FDA-Public Use
  Company Number: US-GILEAD-2014-0105522

PATIENT
  Sex: Female

DRUGS (4)
  1. LETAIRIS [Suspect]
     Indication: PRODUCT USED FOR UNKNOWN INDICATION
     Dosage: 10 MG, QD
     Route: 065
     Dates: start: 20111219
  2. TYVASO [Concomitant]
  3. ADCIRCA [Concomitant]
  4. WARFARIN [Concomitant]

REACTIONS (2)
  - Pulmonary arterial hypertension [Unknown]
  - Heart rate [Unknown]
